FAERS Safety Report 4422165-8 (Version None)
Quarter: 2004Q3

REPORT INFORMATION
  Report Type: 
  Country: None (occurrence: None)
  Receive Date: 20040712
  Receipt Date: 20031006
  Transmission Date: 20050211
  Serious: Yes (Hospitalization)
  Sender: FDA-Public Use
  Company Number: TAP2003Q02310

PATIENT
  Sex: Female

DRUGS (1)
  1. PREVACID [Suspect]
     Dosage: 30 MG, ONCE; ORAL
     Route: 048
     Dates: start: 20030925, end: 20030925

REACTIONS (3)
  - ANAPHYLACTOID REACTION [None]
  - DYSPNOEA [None]
  - SWELLING [None]
